FAERS Safety Report 6877223-5 (Version None)
Quarter: 2010Q3

REPORT INFORMATION
  Report Type: 
  Country: None (occurrence: None)
  Receive Date: 20100727
  Receipt Date: 20090821
  Transmission Date: 20110219
  Serious: No
  Sender: FDA-Public Use
  Company Number: US-ABBOTT-09P-163-0582509-00

PATIENT
  Sex: Female
  Weight: 54.48 kg

DRUGS (2)
  1. SYNTHROID [Suspect]
     Indication: HYPOTHYROIDISM
     Route: 048
     Dates: start: 20090101, end: 20090601
  2. SYNTHROID [Suspect]
     Route: 048
     Dates: start: 20090630

REACTIONS (3)
  - DECREASED APPETITE [None]
  - HYPERHIDROSIS [None]
  - INSOMNIA [None]
